FAERS Safety Report 6164232-7 (Version None)
Quarter: 2009Q2

REPORT INFORMATION
  Report Type: 
  Country: None (occurrence: None)
  Receive Date: 20090422
  Receipt Date: 20090416
  Transmission Date: 20091009
  Serious: Yes (Hospitalization, Other)
  Sender: FDA-Public Use
  Company Number: US-ABBOTT-09P-163-0568573-00

PATIENT
  Sex: Female
  Weight: 76.272 kg

DRUGS (5)
  1. HUMIRA [Suspect]
     Indication: PSORIATIC ARTHROPATHY
     Route: 058
     Dates: start: 20081211
  2. SULFASALAZINE [Concomitant]
     Indication: PSORIATIC ARTHROPATHY
     Dates: start: 20080601
  3. METHOTREXATE [Concomitant]
     Indication: PSORIATIC ARTHROPATHY
     Dates: start: 20080601
  4. IBUPROFEN [Concomitant]
     Indication: PSORIATIC ARTHROPATHY
     Dates: start: 20080120
  5. FOLIC ACID [Concomitant]
     Indication: PSORIATIC ARTHROPATHY

REACTIONS (4)
  - ANKLE FRACTURE [None]
  - FALL [None]
  - JOINT DISLOCATION [None]
  - PSORIATIC ARTHROPATHY [None]
